FAERS Safety Report 8305748 (Version 2)
Quarter: 2012Q4

REPORT INFORMATION
  Report Type: 
  Country: US (occurrence: US)
  Receive Date: 20111221
  Receipt Date: 20120914
  Transmission Date: 20130627
  Serious: Yes (Other)
  Sender: FDA-Public Use
  Company Number: US-GLAXOSMITHKLINE-A0958643A

PATIENT
  Age: 76 Year
  Sex: Male

DRUGS (7)
  1. VOTRIENT [Suspect]
     Indication: RENAL CANCER
     Dosage: 800MG Per day
     Route: 048
     Dates: start: 201012, end: 20111217
  2. AXITINIB [Suspect]
     Indication: PRODUCT USED FOR UNKNOWN INDICATION
  3. SYNTHROID [Concomitant]
  4. OMEPRAZOLE [Concomitant]
  5. BENICAR [Concomitant]
  6. TOPROL [Concomitant]
  7. AMLODIPINE [Concomitant]

REACTIONS (5)
  - Pneumonitis [Recovering/Resolving]
  - Cough [Unknown]
  - Increased upper airway secretion [Unknown]
  - Lung disorder [Unknown]
  - Pneumonia [Not Recovered/Not Resolved]
